FAERS Safety Report 9998169 (Version 1)
Quarter: 2014Q1

REPORT INFORMATION
  Report Type: Spontaneous
  Country: CN (occurrence: CN)
  Receive Date: 20140311
  Receipt Date: 20140311
  Transmission Date: 20141002
  Serious: Yes (Hospitalization)
  Sender: FDA-Public Use
  Company Number: PHHY2014CN026959

PATIENT
  Age: 30 Year
  Sex: Female

DRUGS (1)
  1. PREDNISONE [Suspect]

REACTIONS (6)
  - Premature labour [Recovered/Resolved]
  - Abortion late [Unknown]
  - Listeriosis [Recovered/Resolved]
  - Abdominal pain lower [Unknown]
  - Amniotic cavity infection [Recovered/Resolved]
  - Maternal exposure during pregnancy [Unknown]
